FAERS Safety Report 22027569 (Version 1)
Quarter: 2023Q1

REPORT INFORMATION
  Report Type: Spontaneous
  Country: US (occurrence: None)
  Receive Date: 20230223
  Receipt Date: 20230223
  Transmission Date: 20230418
  Serious: No
  Sender: FDA-Public Use
  Company Number: US-ROCHE-3219176

PATIENT
  Sex: Female

DRUGS (1)
  1. XOLAIR [Suspect]
     Active Substance: OMALIZUMAB
     Indication: Urticaria
     Dosage: INJECT 300 MG (2.4 ML) SUBCUTANEOUSLY EVERY 28 DAYS
     Route: 058

REACTIONS (6)
  - Swelling face [Unknown]
  - Lip swelling [Unknown]
  - Pharyngeal swelling [Unknown]
  - Urticaria [Unknown]
  - Tremor [Unknown]
  - Night sweats [Unknown]
